FAERS Safety Report 8483704-3 (Version None)
Quarter: 2012Q3

REPORT INFORMATION
  Report Type: 
  Country: None (occurrence: None)
  Receive Date: 20120703
  Receipt Date: 20120627
  Transmission Date: 20120928
  Serious: Yes (Other)
  Sender: FDA-Public Use
  Company Number: US-AMGEN-USASP2012014523

PATIENT
  Age: 76 Year
  Sex: Male
  Weight: 84 kg

DRUGS (13)
  1. PRAVASTATIN [Concomitant]
     Indication: BLOOD CHOLESTEROL INCREASED
     Dosage: 20 MG, QHS
     Route: 048
  2. BACTRIM DS [Concomitant]
     Indication: PROPHYLAXIS
     Dosage: UNK UNK, 3 TIMES/WK
     Route: 048
  3. NPLATE [Suspect]
     Indication: IDIOPATHIC THROMBOCYTOPENIC PURPURA
     Dosage: 250 UNK, UNK
     Route: 058
     Dates: start: 20120202, end: 20120405
  4. METFORMIN HCL [Concomitant]
     Indication: DIABETES MELLITUS
     Dosage: 500 MG, UNK
     Route: 048
  5. HYZAAR [Concomitant]
  6. HYDROCODONE [Concomitant]
  7. NYSTATIN [Concomitant]
  8. PREDNISONE TAB [Concomitant]
     Dosage: 5 MG, UNK
     Route: 048
  9. GLYBURIDE [Concomitant]
  10. MAGNESIUM OXIDE [Concomitant]
  11. PRILOSEC [Concomitant]
  12. DITROPAN [Concomitant]
     Dosage: 10 MG, QD
     Route: 048
  13. AMLODIPINE [Concomitant]

REACTIONS (8)
  - ANAEMIA [None]
  - PROSTATE CANCER [None]
  - HICCUPS [None]
  - COUGH [None]
  - FATIGUE [None]
  - ANGIOEDEMA [None]
  - CONTUSION [None]
  - LOCALISED OEDEMA [None]
